FAERS Safety Report 5801780-0 (Version None)
Quarter: 2008Q3

REPORT INFORMATION
  Report Type: 
  Country: None (occurrence: None)
  Receive Date: 20080703
  Receipt Date: 20080703
  Transmission Date: 20090109
  Serious: Yes (Other)
  Sender: FDA-Public Use
  Company Number: None

PATIENT
  Sex: Female
  Weight: 68.5839 kg

DRUGS (2)
  1. FENTANYL [Suspect]
     Indication: BREAST CANCER METASTATIC
     Dosage: 50MCG  EVERY 72 HOURS  TRANSDERMAL
     Route: 062
     Dates: start: 20080626, end: 20080630
  2. FENTANYL [Suspect]
     Indication: PAIN
     Dosage: 50MCG  EVERY 72 HOURS  TRANSDERMAL
     Route: 062
     Dates: start: 20080626, end: 20080630

REACTIONS (2)
  - PAIN [None]
  - PHARMACEUTICAL PRODUCT COMPLAINT [None]
